FAERS Safety Report 5843849-0 (Version None)
Quarter: 2008Q3

REPORT INFORMATION
  Report Type: 
  Country: None (occurrence: None)
  Receive Date: 20080813
  Receipt Date: 20080805
  Transmission Date: 20090109
  Serious: Yes (Other)
  Sender: FDA-Public Use
  Company Number: PHHY2008JP13237

PATIENT
  Sex: Female

DRUGS (6)
  1. VOLTAREN [Suspect]
     Indication: PYREXIA
     Dosage: 50 MG, ONCE/SINGLE
     Route: 054
     Dates: start: 20080626, end: 20080626
  2. UTEMERIN [Concomitant]
     Indication: PREMATURE LABOUR
     Dosage: 100 MG
     Dates: start: 20080612, end: 20080626
  3. MAGNESIUM SULFATE [Concomitant]
     Indication: PREMATURE LABOUR
     Dosage: 16.8 G
     Dates: start: 20080603, end: 20080626
  4. MAGNESIUM OXIDE [Concomitant]
     Indication: CONSTIPATION
     Dosage: UNK
     Dates: start: 20080624, end: 20080626
  5. NICARPINE [Concomitant]
     Indication: HYPERTENSION
     Dosage: 80 MG DAILY
     Route: 042
     Dates: start: 20080603, end: 20080627
  6. FLUMARIN [Concomitant]
     Indication: PYREXIA
     Dosage: 2 G DAILY
     Route: 042
     Dates: start: 20080625, end: 20080627

REACTIONS (3)
  - CAESAREAN SECTION [None]
  - DRUG EXPOSURE DURING PREGNANCY [None]
  - PREMATURE LABOUR [None]
